FAERS Safety Report 24081906 (Version 1)
Quarter: 2024Q3

REPORT INFORMATION
  Report Type: Spontaneous
  Country: US (occurrence: None)
  Receive Date: 20240712
  Receipt Date: 20240712
  Transmission Date: 20241017
  Serious: No
  Sender: US WORLDMEDS
  Company Number: US-ARIS GLOBAL-UWM202308-000027

PATIENT
  Sex: Male

DRUGS (3)
  1. LUCEMYRA [Suspect]
     Active Substance: LOFEXIDINE
     Indication: Withdrawal syndrome
     Dosage: NOT PROVIDED
  2. METHADONE [Interacting]
     Active Substance: METHADONE HYDROCHLORIDE
     Indication: Withdrawal syndrome
  3. METHADONE [Interacting]
     Active Substance: METHADONE HYDROCHLORIDE

REACTIONS (1)
  - Labelled drug-drug interaction issue [Unknown]
